FAERS Safety Report 25278169 (Version 1)
Quarter: 2025Q2

REPORT INFORMATION
  Report Type: Spontaneous
  Country: CN (occurrence: CN)
  Receive Date: 20250507
  Receipt Date: 20250507
  Transmission Date: 20250717
  Serious: Yes (Hospitalization, Disabling)
  Sender: ALEXION PHARMACEUTICALS
  Company Number: CN-ASTRAZENECA-202505CHN000013CN

PATIENT
  Age: 67 Year

DRUGS (4)
  1. DAPAGLIFLOZIN [Suspect]
     Active Substance: DAPAGLIFLOZIN
     Indication: Dilated cardiomyopathy
     Dosage: 5 MILLIGRAM, QD
  2. SACUBITRIL [Concomitant]
     Active Substance: SACUBITRIL
  3. DAPAGLIFLOZIN [Concomitant]
     Active Substance: DAPAGLIFLOZIN
  4. SPIRONOLACTONE [Concomitant]
     Active Substance: SPIRONOLACTONE

REACTIONS (3)
  - Blood ketone body increased [Recovered/Resolved]
  - Chest discomfort [Unknown]
  - Dyspnoea [Unknown]
